FAERS Safety Report 6519793-2 (Version None)
Quarter: 2009Q4

REPORT INFORMATION
  Report Type: 
  Country: None (occurrence: None)
  Receive Date: 20091228
  Receipt Date: 20091228
  Transmission Date: 20100525
  Serious: No
  Sender: FDA-Public Use
  Company Number: None

PATIENT
  Sex: Female
  Weight: 56.69 kg

DRUGS (1)
  1. LORAZEPAM [Suspect]
     Dosage: 2 MG 3 TIMES A DAY PO
     Route: 048
     Dates: start: 20091214, end: 20091219

REACTIONS (6)
  - ABNORMAL BEHAVIOUR [None]
  - AGGRESSION [None]
  - OBSESSIVE-COMPULSIVE DISORDER [None]
  - PRESSURE OF SPEECH [None]
  - RESTLESSNESS [None]
  - THINKING ABNORMAL [None]
